FAERS Safety Report 10283883 (Version 5)
Quarter: 2014Q4

REPORT INFORMATION
  Report Type: Spontaneous
  Country: OM (occurrence: OM)
  Receive Date: 20140708
  Receipt Date: 20141112
  Transmission Date: 20150528
  Serious: Yes (Death, Hospitalization, Other)
  Sender: FDA-Public Use
  Company Number: OM-B.I. PHARMACEUTICALS,INC./RIDGEFIELD-2014-BI-28839AE

PATIENT
  Age: 58 Year
  Sex: Female
  Weight: 62.5 kg

DRUGS (6)
  1. GILOTRIF [Suspect]
     Active Substance: AFATINIB
     Indication: LUNG ADENOCARCINOMA METASTATIC
     Dosage: 40 MG
     Route: 048
     Dates: start: 201406
  2. TARCEVA [Concomitant]
     Active Substance: ERLOTINIB HYDROCHLORIDE
     Indication: PRODUCT USED FOR UNKNOWN INDICATION
     Route: 065
  3. GILOTRIF [Suspect]
     Active Substance: AFATINIB
     Indication: EGFR GENE MUTATION
     Dosage: 30 MG
     Route: 048
  4. AMLODIPIN+ATENOLOL [Concomitant]
     Indication: HYPERTENSION
     Route: 065
  5. KEPPRA [Concomitant]
     Active Substance: LEVETIRACETAM
     Indication: EPILEPSY
     Route: 065
  6. ZOLEDRONIC ACID. [Concomitant]
     Active Substance: ZOLEDRONIC ACID
     Indication: PRODUCT USED FOR UNKNOWN INDICATION
     Route: 065

REACTIONS (10)
  - Epistaxis [Unknown]
  - Pericardial effusion [Unknown]
  - Disorientation [Unknown]
  - Malignant neoplasm progression [Not Recovered/Not Resolved]
  - Myocardial necrosis marker increased [Fatal]
  - Asthenia [Unknown]
  - Dyspnoea [Unknown]
  - Scar [Unknown]
  - Swelling [Unknown]
  - Blood creatinine increased [Unknown]

NARRATIVE: CASE EVENT DATE: 20140824
